FAERS Safety Report 9603454 (Version 1)
Quarter: 2013Q4

REPORT INFORMATION
  Report Type: Spontaneous
  Country: KR (occurrence: KR)
  Receive Date: 20131007
  Receipt Date: 20131007
  Transmission Date: 20140711
  Serious: Yes (Other)
  Sender: FDA-Public Use
  Company Number: KR-ASTRAZENECA-2013SE73719

PATIENT
  Age: 1 Month
  Sex: Male
  Weight: .8 kg

DRUGS (1)
  1. SYNAGIS [Suspect]
     Indication: PREMATURE BABY
     Dosage: ONCE, 12 MILLIGRAMS
     Route: 030
     Dates: start: 20130925

REACTIONS (1)
  - Apnoea [Recovered/Resolved]
